FAERS Safety Report 6895423-5 (Version None)
Quarter: 2010Q3

REPORT INFORMATION
  Report Type: 
  Country: None (occurrence: None)
  Receive Date: 20100730
  Receipt Date: 20100730
  Transmission Date: 20110219
  Serious: Yes (Other)
  Sender: FDA-Public Use
  Company Number: None

PATIENT
  Age: 57 Year
  Sex: Female
  Weight: 73.7 kg

DRUGS (1)
  1. FOSAMAX [Suspect]
     Indication: OSTEOPOROSIS

REACTIONS (6)
  - ARTHRALGIA [None]
  - CONTUSION [None]
  - FRACTURED SACRUM [None]
  - PATHOLOGICAL FRACTURE [None]
  - PUBIS FRACTURE [None]
  - SPINAL OSTEOARTHRITIS [None]
